FAERS Safety Report 18325785 (Version 1)
Quarter: 2020Q3

REPORT INFORMATION
  Report Type: Spontaneous
  Country: US (occurrence: US)
  Receive Date: 20200929
  Receipt Date: 20200929
  Transmission Date: 20201103
  Serious: Yes (Death, Hospitalization, Other)
  Sender: FDA-Public Use
  Company Number: US-ELI_LILLY_AND_COMPANY-US202009008533

PATIENT
  Sex: Female

DRUGS (3)
  1. GEMCITABINE HYDROCHLORIDE. [Suspect]
     Active Substance: GEMCITABINE HYDROCHLORIDE
     Indication: HORMONE RECEPTOR POSITIVE BREAST CANCER
     Dosage: UNK, UNKNOWN
     Route: 065
     Dates: start: 201712, end: 201803
  2. ABEMACICLIB [Suspect]
     Active Substance: ABEMACICLIB
     Dosage: 150 MG, BID
     Route: 065
     Dates: end: 201912
  3. ABEMACICLIB [Suspect]
     Active Substance: ABEMACICLIB
     Indication: HORMONE RECEPTOR POSITIVE BREAST CANCER
     Dosage: 200 MG, BID
     Route: 065
     Dates: start: 20180809

REACTIONS (4)
  - Malignant neoplasm progression [Unknown]
  - Febrile neutropenia [Unknown]
  - Sepsis [Fatal]
  - Diarrhoea [Unknown]

NARRATIVE: CASE EVENT DATE: 202001
